FAERS Safety Report 7681343-5 (Version None)
Quarter: 2011Q3

REPORT INFORMATION
  Report Type: 
  Country: None (occurrence: None)
  Receive Date: 20110812
  Receipt Date: 20110809
  Transmission Date: 20111222
  Serious: Yes (Other)
  Sender: FDA-Public Use
  Company Number: AT-ABBOTT-11P-009-0837313-00

PATIENT
  Sex: Female
  Weight: 78 kg

DRUGS (3)
  1. ESCITALOPRAM [Concomitant]
     Indication: PRODUCT USED FOR UNKNOWN INDICATION
     Dates: start: 20110419
  2. ACTIVELLE [Concomitant]
     Indication: PRODUCT USED FOR UNKNOWN INDICATION
     Dosage: 1MG/0.5MG
     Dates: start: 20100601
  3. HUMIRA [Suspect]
     Indication: SPONDYLITIS
     Route: 058
     Dates: start: 20101201

REACTIONS (7)
  - INJECTION SITE ERYTHEMA [None]
  - TACHYCARDIA [None]
  - RESPIRATORY DISORDER [None]
  - DYSGEUSIA [None]
  - ANXIETY [None]
  - FEELING HOT [None]
  - NAUSEA [None]
